FAERS Safety Report 18877404 (Version 1)
Quarter: 2021Q1

REPORT INFORMATION
  Report Type: Spontaneous
  Country: US (occurrence: US)
  Receive Date: 20210211
  Receipt Date: 20210211
  Transmission Date: 20210420
  Serious: No
  Sender: FDA-Public Use
  Company Number: US-SA-2021SA039115

PATIENT
  Sex: Female

DRUGS (3)
  1. CLARITINE [Concomitant]
     Active Substance: LORATADINE
  2. DUPIXENT [Suspect]
     Active Substance: DUPILUMAB
     Indication: DERMATITIS ATOPIC
     Dosage: 300 MG, QOW
     Route: 058
     Dates: start: 20191121
  3. MULTIVIT [VITAMINS NOS] [Concomitant]

REACTIONS (1)
  - Dermatitis atopic [Not Recovered/Not Resolved]
